FAERS Safety Report 6491627-4 (Version None)
Quarter: 2009Q4

REPORT INFORMATION
  Report Type: 
  Country: None (occurrence: None)
  Receive Date: 20091207
  Receipt Date: 20091123
  Transmission Date: 20100525
  Serious: No
  Sender: FDA-Public Use
  Company Number: 008194

PATIENT
  Age: 7 Month

DRUGS (4)
  1. BUSULFEX [Suspect]
     Indication: STEM CELL TRANSPLANT
     Dosage: 5 MG/KG, INTRAVENOUS
     Route: 042
     Dates: start: 20040101, end: 20040101
  2. ATG (ANTILYMPHOCYTE IMMUNOGLOBULIN (HORSE)) [Concomitant]
  3. FLUDARABINE PHOSPHATE [Concomitant]
  4. CYTOXAN [Concomitant]

REACTIONS (2)
  - ANAEMIA HAEMOLYTIC AUTOIMMUNE [None]
  - CHRONIC GRAFT VERSUS HOST DISEASE [None]
